FAERS Safety Report 8291271-2 (Version None)
Quarter: 2012Q2

REPORT INFORMATION
  Report Type: 
  Country: None (occurrence: None)
  Receive Date: 20120413
  Receipt Date: 20120331
  Transmission Date: 20120825
  Serious: Yes (Other)
  Sender: FDA-Public Use
  Company Number: 2012AP000914

PATIENT
  Age: 35 Year
  Sex: Male

DRUGS (4)
  1. QUETIAPINE FUMARATE [Suspect]
     Indication: SCHIZOPHRENIA
  2. HALOPERIDOL [Suspect]
     Indication: SCHIZOPHRENIA
  3. RISPERIDONE [Suspect]
     Indication: SCHIZOPHRENIA
     Dosage: 4 MG;QD
  4. ALPRAZOLAM [Suspect]
     Indication: SCHIZOPHRENIA
     Dosage: 1 MG;QD

REACTIONS (4)
  - DYSPNOEA [None]
  - TARDIVE DYSKINESIA [None]
  - GAIT DISTURBANCE [None]
  - BALANCE DISORDER [None]
